FAERS Safety Report 19905404 (Version 7)
Quarter: 2022Q4

REPORT INFORMATION
  Report Type: Report from Study
  Country: CA (occurrence: CA)
  Receive Date: 20211001
  Receipt Date: 20221129
  Transmission Date: 20230112
  Serious: Yes (Other)
  Sender: FDA-Public Use
  Company Number: CA-TAKEDA-2021TUS060037

PATIENT
  Age: 61 Year
  Sex: Male

DRUGS (7)
  1. VEDOLIZUMAB [Suspect]
     Active Substance: VEDOLIZUMAB
     Indication: Crohn^s disease
     Dosage: 300 MILLIGRAM
     Route: 042
     Dates: start: 20210917
  2. VEDOLIZUMAB [Suspect]
     Active Substance: VEDOLIZUMAB
     Dosage: 300 MILLIGRAM
     Route: 042
  3. VEDOLIZUMAB [Suspect]
     Active Substance: VEDOLIZUMAB
     Dosage: 300 MILLIGRAM
     Route: 042
  4. VEDOLIZUMAB [Suspect]
     Active Substance: VEDOLIZUMAB
     Dosage: 300 MILLIGRAM
     Route: 042
  5. DEXILANT [Concomitant]
     Active Substance: DEXLANSOPRAZOLE
     Dosage: UNK
  6. RIFAXIMIN [Concomitant]
     Active Substance: RIFAXIMIN
     Dosage: 550 MILLIGRAM
     Dates: start: 202106
  7. VITAMIN D NOS [Concomitant]
     Active Substance: VITAMIN D NOS
     Dosage: UNK
     Dates: start: 202109

REACTIONS (14)
  - Oesophageal ulcer [Unknown]
  - Crohn^s disease [Unknown]
  - Hiatus hernia [Unknown]
  - Abdominal hernia [Not Recovered/Not Resolved]
  - Infusion site reaction [Unknown]
  - Diarrhoea [Unknown]
  - Myalgia [Unknown]
  - Asthenia [Unknown]
  - Headache [Unknown]
  - Fatigue [Unknown]
  - Arthralgia [Unknown]
  - Stress [Unknown]
  - Abdominal pain [Unknown]
  - Drug ineffective [Unknown]
